FAERS Safety Report 22182745 (Version 2)
Quarter: 2023Q2

REPORT INFORMATION
  Report Type: Report from Study
  Country: CA (occurrence: CA)
  Receive Date: 20230406
  Receipt Date: 20230524
  Transmission Date: 20230721
  Serious: Yes (Hospitalization, Other)
  Sender: FDA-Public Use
  Company Number: CA-HLS-202300729

PATIENT
  Age: 44 Year
  Sex: Male

DRUGS (3)
  1. CLOZARIL [Suspect]
     Active Substance: CLOZAPINE
     Indication: Schizophrenia
     Dosage: 100MG
     Route: 048
  2. CLOZARIL [Suspect]
     Active Substance: CLOZAPINE
     Indication: Schizophrenia
     Dosage: HAVE INCREASED TO 125MG ONCE DAILY
     Route: 048
     Dates: start: 20230214
  3. PALIPERIDONE [Suspect]
     Active Substance: PALIPERIDONE
     Indication: Product used for unknown indication
     Dosage: THREE-MONTH DEPOT
     Route: 065

REACTIONS (4)
  - Hallucination, auditory [Recovering/Resolving]
  - Paranoia [Recovering/Resolving]
  - Orthostatic hypotension [Unknown]
  - Tachycardia [Unknown]
